FAERS Safety Report 7732117-8 (Version None)
Quarter: 2011Q3

REPORT INFORMATION
  Report Type: 
  Country: None (occurrence: None)
  Receive Date: 20110906
  Receipt Date: 20110808
  Transmission Date: 20111222
  Serious: No
  Sender: FDA-Public Use
  Company Number: US-AMGEN-USASP2011031351

PATIENT
  Sex: Female

DRUGS (4)
  1. LIPITOR [Concomitant]
  2. PROLIA [Suspect]
     Indication: OSTEOPOROSIS POSTMENOPAUSAL
     Dosage: 60 MG, Q6MO
     Dates: start: 20110616
  3. BENICAR [Concomitant]
  4. VESICARE [Concomitant]

REACTIONS (4)
  - CONSTIPATION [None]
  - PAIN IN JAW [None]
  - UROGENITAL HAEMORRHAGE [None]
  - INSOMNIA [None]
